FAERS Safety Report 20306346 (Version 1)
Quarter: 2022Q1

REPORT INFORMATION
  Report Type: Spontaneous
  Country: US (occurrence: US)
  Receive Date: 20220106
  Receipt Date: 20220106
  Transmission Date: 20220423
  Serious: No
  Sender: FDA-Public Use
  Company Number: US-GILEAD-2022-0564173

PATIENT
  Sex: Male

DRUGS (1)
  1. BIKTARVY [Suspect]
     Active Substance: BICTEGRAVIR SODIUM\EMTRICITABINE\TENOFOVIR ALAFENAMIDE FUMARATE
     Indication: Product used for unknown indication
     Dosage: UNK
     Route: 065
     Dates: start: 2016

REACTIONS (5)
  - Sperm concentration decreased [Not Recovered/Not Resolved]
  - Head injury [Not Recovered/Not Resolved]
  - Dysuria [Not Recovered/Not Resolved]
  - Chlamydial infection [Unknown]
  - Rash pruritic [Not Recovered/Not Resolved]
